FAERS Safety Report 6685878 (Version 4)
Quarter: 2012Q4

REPORT INFORMATION
  Report Type: 
  Country: US (occurrence: ZW)
  Receive Date: 20080627
  Receipt Date: 20120829
  Transmission Date: 20130627
  Serious: Yes (Death, Hospitalization)
  Sender: FDA-Public Use
  Company Number: ZW-ABBOTT-08P-190-0459157-00

PATIENT
  Age: 34 Year
  Sex: Female
  Weight: 54.6 kg

DRUGS (5)
  1. LOPINAVIR\RITONAVIR [Suspect]
     Indication: HIV INFECTION
     Dosage: 200mg/50mg
     Route: 048
     Dates: start: 20080422, end: 20080509
  2. TENOFOVIR [Concomitant]
     Indication: HIV INFECTION
     Route: 048
     Dates: start: 20080422, end: 20080509
  3. EMTRICITABINE [Concomitant]
     Indication: HIV INFECTION
     Route: 048
     Dates: start: 20080422, end: 20080509
  4. COTRIMOXAZOL [Concomitant]
     Indication: OPPORTUNISTIC INFECTION PROPHYLAXIS
  5. FERROUS SULPHATE [Concomitant]
     Indication: ANAEMIA

REACTIONS (6)
  - Renal failure acute [Fatal]
  - Anaemia of chronic disease [None]
  - Abscess [None]
  - Peritoneal dialysis [None]
  - Melaena [None]
  - Thrombocytopenia [None]
